FAERS Safety Report 9235798 (Version 1)
Quarter: 2013Q1

REPORT INFORMATION
  Report Type: Spontaneous
  Country: US (occurrence: None)
  Receive Date: 20121031
  Receipt Date: 20121031
  Transmission Date: 20140127
  Serious: No
  Sender: FDA-Public Use
  Company Number: PHEH2012US013633

PATIENT
  Age: 49 Year
  Sex: Female
  Weight: 63.5 kg

DRUGS (8)
  1. GILENYA [Suspect]
     Indication: MULTIPLE SCLEROSIS
     Route: 048
  2. SYNTHROID (LEVOTHYROXINE SODIUM) TABLET [Concomitant]
  3. IBUPROFEN (IBUPROFEN) CAPSULE [Concomitant]
  4. FAMPRIDINE (FAMPRIDINE) TABLET [Concomitant]
  5. FISH OIL (FISH OIL) CAPSULE [Concomitant]
  6. FLAXSEED (LINUM USITATISSIMUM SEED) [Concomitant]
  7. MULTIVITAMIN (VITAMINS NOS) CAPSULE [Concomitant]
  8. CALCIUM WITH VITAMIN D (CALCIUM PHOSPHATE, CALCIUM SODIUM LACTATE, ERGOCALCIFEROL) [Concomitant]

REACTIONS (2)
  - White blood cell count decreased [None]
  - Inappropriate schedule of drug administration [None]
